FAERS Safety Report 14283456 (Version 1)
Quarter: 2017Q4

REPORT INFORMATION
  Report Type: Report from Study
  Country: US (occurrence: US)
  Receive Date: 20171214
  Receipt Date: 20171214
  Transmission Date: 20180321
  Serious: Yes (Hospitalization, Other)
  Sender: FDA-Public Use
  Company Number: US-BAYER-2017-235594

PATIENT
  Age: 78 Year
  Sex: Female
  Weight: 58.96 kg

DRUGS (2)
  1. ADEMPAS [Suspect]
     Active Substance: RIOCIGUAT
     Indication: PULMONARY ARTERIAL HYPERTENSION
     Dosage: UNK
     Dates: start: 20151022
  2. ADEMPAS [Suspect]
     Active Substance: RIOCIGUAT
     Indication: PULMONARY ARTERIAL HYPERTENSION
     Dosage: 2.5 MG, TID
     Route: 048

REACTIONS (9)
  - Diarrhoea [Unknown]
  - Hospitalisation [None]
  - Gastrointestinal ulcer [None]
  - Raynaud^s phenomenon [None]
  - Gastrointestinal inflammation [None]
  - Scleroderma [None]
  - Systemic lupus erythematosus [None]
  - Small intestinal obstruction [Unknown]
  - Vomiting [Not Recovered/Not Resolved]
